FAERS Safety Report 6140107-4 (Version None)
Quarter: 2009Q2

REPORT INFORMATION
  Report Type: 
  Country: None (occurrence: None)
  Receive Date: 20090401
  Receipt Date: 20090321
  Transmission Date: 20091009
  Serious: Yes (Hospitalization, Other)
  Sender: FDA-Public Use
  Company Number: US-PFIZER INC-2008034062

PATIENT
  Sex: Male

DRUGS (1)
  1. CHAMPIX [Suspect]
     Dosage: UNK
     Dates: start: 20080301

REACTIONS (13)
  - CRYING [None]
  - DEHYDRATION [None]
  - FAMILY STRESS [None]
  - GLUCOSE TOLERANCE IMPAIRED [None]
  - HYPERTENSION [None]
  - INSOMNIA [None]
  - IRRITABILITY [None]
  - MYOCARDIAL INFARCTION [None]
  - OVERWEIGHT [None]
  - PANIC ATTACK [None]
  - ROAD TRAFFIC ACCIDENT [None]
  - STRESS [None]
  - VIOLENCE-RELATED SYMPTOM [None]
